FAERS Safety Report 9749177 (Version 3)
Quarter: 2014Q2

REPORT INFORMATION
  Report Type: Spontaneous
  Country: US (occurrence: US)
  Receive Date: 20131212
  Receipt Date: 20140611
  Transmission Date: 20141212
  Serious: No
  Sender: FDA-Public Use
  Company Number: US-INCYTE CORPORATION-2013IN002290

PATIENT
  Age: 79 Year
  Sex: Male

DRUGS (6)
  1. JAKAFI [Suspect]
     Indication: MYELOFIBROSIS
     Dosage: 25 MG, BID
     Route: 048
     Dates: start: 20130923
  2. BENADRYL ALLERGY + SINUS [Concomitant]
  3. XANAX [Concomitant]
  4. LEVOTHYROXINE [Concomitant]
  5. PRILOSEC                           /00661201/ [Concomitant]
  6. MENS MULTIVITAMIN [Concomitant]

REACTIONS (5)
  - Asthenia [Unknown]
  - Malaise [Unknown]
  - Anaemia [Unknown]
  - Headache [Unknown]
  - Drug ineffective [Unknown]
